FAERS Safety Report 5932337-9 (Version None)
Quarter: 2008Q4

REPORT INFORMATION
  Report Type: 
  Country: None (occurrence: None)
  Receive Date: 20081027
  Receipt Date: 20081027
  Transmission Date: 20090506
  Serious: No
  Sender: FDA-Public Use
  Company Number: None

PATIENT
  Age: 51 Year
  Sex: Male
  Weight: 72.5755 kg

DRUGS (1)
  1. VIAGRA [Suspect]
     Dosage: 50 MG. 1/MONTH FOR 9 MNTH PO
     Route: 048
     Dates: start: 20080101, end: 20080920

REACTIONS (4)
  - BLINDNESS [None]
  - EYE DISORDER [None]
  - OPTIC ISCHAEMIC NEUROPATHY [None]
  - VISUAL ACUITY REDUCED [None]
